FAERS Safety Report 9961505 (Version 2)
Quarter: 2014Q1

REPORT INFORMATION
  Report Type: Spontaneous
  Country: TR (occurrence: TR)
  Receive Date: 20140305
  Receipt Date: 20140313
  Transmission Date: 20141002
  Serious: Yes (Other)
  Sender: FDA-Public Use
  Company Number: TR-PFIZER INC-2014058118

PATIENT
  Sex: Female

DRUGS (2)
  1. ERAXIS [Suspect]
     Dosage: UNK
     Dates: start: 201402
  2. MERONEM [Suspect]

REACTIONS (1)
  - Leukopenia [Recovering/Resolving]
